FAERS Safety Report 8468902-7 (Version None)
Quarter: 2012Q2

REPORT INFORMATION
  Report Type: 
  Country: None (occurrence: None)
  Receive Date: 20120620
  Receipt Date: 20120612
  Transmission Date: 20120825
  Serious: Yes (Hospitalization, Other)
  Sender: FDA-Public Use
  Company Number: 2012HGS-003679

PATIENT
  Age: 53 Year
  Sex: Female
  Weight: 103.8737 kg

DRUGS (16)
  1. PREDNISONE [Concomitant]
  2. CALCIUM WITH VITAMIN D (CALCIUM + VIT D) (CALCIUM CARBONATE, VITAMIN D [Concomitant]
  3. FISH OIL (FISH OIL) (FISH OIL) [Concomitant]
  4. TOPROL-XL [Concomitant]
  5. FLEXERIL (CYCLOBENZAPRINE HYROCHLORIDE) (CYCLOBENZAPRINE HYDROCHLORIDE [Concomitant]
  6. NEXIUM [Concomitant]
  7. MINIPRESS (PRAZOSIN HYDROCHLORIDE) (PRAZOSIN HYDROCHLORIDE) [Concomitant]
  8. NEULASTA [Concomitant]
  9. ALLOPURINOL [Concomitant]
  10. ASPIRIN [Concomitant]
  11. TRAMADOL HCL (TRAMADOL HYDROCHLORIDE) (TRAMADOL HYDROCHLORIDE) [Concomitant]
  12. OCUVITE (OCUVITE /015053801/) [Concomitant]
  13. VITAMIN D3 (COLECALCIFEROL) (COLCALCIFEROL) [Concomitant]
  14. BENLYSTA [Suspect]
     Indication: SYSTEMIC LUPUS ERYTHEMATOSUS
     Dosage: INTRAVENOUS DRIP
     Route: 041
     Dates: start: 20120423
  15. MAGNESIUM OXIDE (MAGNESIUM OXIDE) (MAGNESIUM OXIDE) [Concomitant]
  16. PAROXETINE HCL (PAROXETINE HYDROCHLORIDE) (PAROEXTINE HYDROCHLORIDE) [Concomitant]

REACTIONS (3)
  - METRORRHAGIA [None]
  - VAGINAL HAEMORRHAGE [None]
  - ENDOMETRIAL CANCER STAGE I [None]
